FAERS Safety Report 4508942-3 (Version None)
Quarter: 2004Q4

REPORT INFORMATION
  Report Type: 
  Country: None (occurrence: None)
  Receive Date: 20041123
  Receipt Date: 20041112
  Transmission Date: 20050328
  Serious: Yes (Hospitalization)
  Sender: FDA-Public Use
  Company Number: FR-GLAXOSMITHKLINE-B0351275A

PATIENT
  Age: 78 Year
  Sex: Female

DRUGS (16)
  1. VALACYCLOVIR HCL [Suspect]
     Indication: HERPES ZOSTER
     Dosage: 500MG PER DAY
     Route: 048
     Dates: start: 20040917, end: 20040924
  2. VACCINIUM MYRTILLUS EXTRACTS [Concomitant]
     Route: 048
  3. ATARAX [Concomitant]
  4. DAFLON [Concomitant]
     Route: 048
  5. RENAGEL [Concomitant]
     Route: 048
  6. CALCIDIA [Concomitant]
     Route: 047
  7. NITRODERM [Concomitant]
  8. KARDEGIC [Concomitant]
     Route: 048
  9. OMEPRAZOLE [Concomitant]
  10. PROZAC [Concomitant]
     Route: 048
  11. TRAMADOL [Concomitant]
  12. PLAVIX [Concomitant]
     Route: 048
  13. AMLOR [Concomitant]
     Route: 048
  14. RIVOTRIL [Concomitant]
     Indication: HERPES ZOSTER
  15. DURAGESIC [Concomitant]
     Indication: HERPES ZOSTER
  16. IKOREL [Concomitant]

REACTIONS (3)
  - DISORIENTATION [None]
  - FEELING DRUNK [None]
  - TREMOR [None]
